FAERS Safety Report 7134707-2 (Version None)
Quarter: 2010Q4

REPORT INFORMATION
  Report Type: 
  Country: None (occurrence: None)
  Receive Date: 20101203
  Receipt Date: 20101124
  Transmission Date: 20110411
  Serious: Yes (Other)
  Sender: FDA-Public Use
  Company Number: US-SANOFI-AVENTIS-2010SA072370

PATIENT
  Age: 62 Year
  Sex: Male

DRUGS (4)
  1. LANTUS [Suspect]
     Dosage: DOSE:65 UNIT(S)
     Route: 058
  2. LANTUS [Suspect]
     Route: 058
     Dates: start: 19960101
  3. OPTICLICK [Suspect]
  4. OPTICLICK [Suspect]
     Dates: start: 19960101

REACTIONS (3)
  - BRAIN INJURY [None]
  - FALL [None]
  - GAIT DISTURBANCE [None]
